FAERS Safety Report 23076636 (Version 3)
Quarter: 2023Q4

REPORT INFORMATION
  Report Type: Spontaneous
  Country: CZ (occurrence: CZ)
  Receive Date: 20231017
  Receipt Date: 20231031
  Transmission Date: 20240110
  Serious: Yes (Life-Threatening, Hospitalization, Other)
  Sender: FDA-Public Use
  Company Number: None

PATIENT
  Age: 67 Year
  Sex: Female
  Weight: 70 kg

DRUGS (8)
  1. HAEMATE P [Suspect]
     Active Substance: ANTIHEMOPHILIC FACTOR HUMAN
     Indication: Von Willebrand^s disease
     Dosage: 1 DOSAGE FORM, TOT
     Route: 042
     Dates: start: 20230925, end: 20230925
  2. HAEMATE P [Suspect]
     Active Substance: ANTIHEMOPHILIC FACTOR HUMAN
     Indication: Haemorrhage prophylaxis
     Dosage: UNK
     Route: 065
  3. HAEMATE P [Suspect]
     Active Substance: ANTIHEMOPHILIC FACTOR HUMAN
     Indication: Haemorrhage prophylaxis
     Dosage: 2000 INTERNATIONAL UNIT, TOT
     Route: 042
     Dates: start: 20230925, end: 20230925
  4. DIOSMIN\HESPERIDIN [Concomitant]
     Active Substance: DIOSMIN\HESPERIDIN
  5. METFORMIN HYDROCHLORIDE [Concomitant]
     Active Substance: METFORMIN HYDROCHLORIDE
  6. BISOPROLOL FUMARATE\PERINDOPRIL ARGININE [Concomitant]
     Active Substance: BISOPROLOL FUMARATE\PERINDOPRIL ARGININE
  7. ROSUVASTATIN CALCIUM [Concomitant]
     Active Substance: ROSUVASTATIN CALCIUM
  8. TRANEXAMIC ACID [Concomitant]
     Active Substance: TRANEXAMIC ACID
     Dosage: UNK, PRN (IN CASE OF ANY PROBLEMS)

REACTIONS (14)
  - Anaphylactic shock [Recovered/Resolved]
  - Blister [Recovered/Resolved]
  - Hypotension [Recovered/Resolved]
  - Dermatitis bullous [Recovered/Resolved]
  - Syncope [Recovered/Resolved]
  - Fall [Recovered/Resolved]
  - Anal incontinence [Recovered/Resolved]
  - Head injury [Recovered/Resolved]
  - Skin laceration [Recovered/Resolved]
  - Injection site pruritus [Unknown]
  - Dermatitis contact [Unknown]
  - Erythema [Recovered/Resolved]
  - Urinary incontinence [Unknown]
  - Anal incontinence [Unknown]

NARRATIVE: CASE EVENT DATE: 20230925
